FAERS Safety Report 25802282 (Version 1)
Quarter: 2025Q3

REPORT INFORMATION
  Report Type: Spontaneous
  Country: EU (occurrence: EU)
  Receive Date: 20250915
  Receipt Date: 20250915
  Transmission Date: 20251021
  Serious: Yes (Life-Threatening, Hospitalization, Other)
  Sender: ALKEM
  Company Number: None

PATIENT
  Age: 7 Year
  Sex: Female

DRUGS (6)
  1. IBUPROFEN [Suspect]
     Active Substance: IBUPROFEN
     Indication: Hyperpyrexia
     Route: 065
  2. METHYLPREDNISOLONE [Suspect]
     Active Substance: METHYLPREDNISOLONE
     Indication: Steroid therapy
     Route: 065
  3. CEFTRIAXONE [Concomitant]
     Active Substance: CEFTRIAXONE
     Indication: Antibiotic therapy
     Route: 042
  4. CEFTRIAXONE [Concomitant]
     Active Substance: CEFTRIAXONE
     Indication: Inflammatory marker increased
  5. ACETAMINOPHEN [Concomitant]
     Active Substance: ACETAMINOPHEN
     Indication: Hyperpyrexia
     Route: 065
  6. SALINE [Concomitant]
     Active Substance: SODIUM CHLORIDE
     Indication: Inflammatory marker increased
     Route: 065

REACTIONS (5)
  - Methaemoglobinaemia [Recovered/Resolved]
  - Hyperferritinaemia [Recovering/Resolving]
  - Haemolytic anaemia [Recovering/Resolving]
  - Acute kidney injury [Recovered/Resolved]
  - Norovirus infection [Unknown]
